FAERS Safety Report 8156901-4 (Version None)
Quarter: 2012Q1

REPORT INFORMATION
  Report Type: 
  Country: None (occurrence: None)
  Receive Date: 20120222
  Receipt Date: 20120213
  Transmission Date: 20120608
  Serious: Yes (Hospitalization)
  Sender: FDA-Public Use
  Company Number: GB-GLAXOSMITHKLINE-B0782985A

PATIENT
  Sex: Male

DRUGS (2)
  1. BENDROFLUAZIDE [Concomitant]
     Dosage: 2.5MG PER DAY
     Route: 065
  2. VOTRIENT [Suspect]
     Indication: RENAL CELL CARCINOMA
     Dosage: 800MG PER DAY
     Route: 048
     Dates: start: 20110502

REACTIONS (1)
  - ACCIDENTAL OVERDOSE [None]
